FAERS Safety Report 5637140-5 (Version None)
Quarter: 2008Q1

REPORT INFORMATION
  Report Type: 
  Country: None (occurrence: None)
  Receive Date: 20080225
  Receipt Date: 20071218
  Transmission Date: 20080703
  Serious: Yes (Other)
  Sender: FDA-Public Use
  Company Number: US-BRISTOL-MYERS SQUIBB COMPANY-13990452

PATIENT
  Age: 80 Year
  Sex: Female
  Weight: 59 kg

DRUGS (6)
  1. METFORMIN HCL [Suspect]
     Indication: TYPE 2 DIABETES MELLITUS
     Route: 048
     Dates: start: 20071117
  2. GLYBURIDE [Suspect]
     Indication: MYOCARDIAL INFARCTION
     Dates: end: 20071117
  3. FUROSEMIDE [Suspect]
     Dates: end: 20071117
  4. LANTUS [Concomitant]
     Dosage: 1 DOSAGE FORM = 26 (NO UNITS).LOWERED TO 20. ON 11/17/2007, REDUCED TO 15
  5. COZAAR [Concomitant]
  6. ASPIRIN [Concomitant]

REACTIONS (10)
  - BACK PAIN [None]
  - BLOOD GLUCOSE DECREASED [None]
  - BLOOD GLUCOSE INCREASED [None]
  - COLD SWEAT [None]
  - CONSTIPATION [None]
  - DECREASED APPETITE [None]
  - INSOMNIA [None]
  - MUSCLE SPASMS [None]
  - URINE OUTPUT DECREASED [None]
  - VISION BLURRED [None]
